FAERS Safety Report 6742415-2 (Version None)
Quarter: 2010Q2

REPORT INFORMATION
  Report Type: 
  Country: None (occurrence: None)
  Receive Date: 20100526
  Receipt Date: 20100513
  Transmission Date: 20101027
  Serious: Yes (Other)
  Sender: FDA-Public Use
  Company Number: PHHY2010US31337

PATIENT
  Sex: Female

DRUGS (4)
  1. LOPRESSOR [Suspect]
     Dosage: UNK
  2. DIOVAN [Suspect]
     Dosage: 160 MG
  3. LOVASTATIN [Concomitant]
     Indication: BLOOD CHOLESTEROL
  4. ZOLOFT [Concomitant]
     Indication: DEPRESSION

REACTIONS (7)
  - ANEURYSM RUPTURED [None]
  - DIPLOPIA [None]
  - DRUG INEFFECTIVE [None]
  - HAEMORRHAGE [None]
  - HEADACHE [None]
  - NAUSEA [None]
  - VISION BLURRED [None]
